FAERS Safety Report 10784371 (Version 1)
Quarter: 2015Q1

REPORT INFORMATION
  Report Type: Spontaneous
  Country: US (occurrence: None)
  Receive Date: 20150209
  Receipt Date: 20150209
  Transmission Date: 20150721
  Serious: Yes (Hospitalization, Other)
  Sender: FDA-Public Use
  Company Number: None

PATIENT
  Age: 5 Year
  Sex: Female
  Weight: 23.13 kg

DRUGS (1)
  1. TAMIFLU [Suspect]
     Active Substance: OSELTAMIVIR PHOSPHATE
     Indication: INFLUENZA A VIRUS TEST POSITIVE
     Route: 048
     Dates: start: 20150206, end: 20150207

REACTIONS (5)
  - Unevaluable event [None]
  - Vomiting [None]
  - Confusional state [None]
  - Dysgeusia [None]
  - Visual impairment [None]

NARRATIVE: CASE EVENT DATE: 20150207
